FAERS Safety Report 19326654 (Version 1)
Quarter: 2021Q2

REPORT INFORMATION
  Report Type: Spontaneous
  Country: GB (occurrence: GB)
  Receive Date: 20210528
  Receipt Date: 20210528
  Transmission Date: 20210717
  Serious: Yes (Disabling, Other)
  Sender: FDA-Public Use
  Company Number: GB-SA-2021SA172934

PATIENT
  Age: 27 Year
  Sex: Female
  Weight: 69.85 kg

DRUGS (2)
  1. LEVEST [Concomitant]
  2. DUPIXENT [Suspect]
     Active Substance: DUPILUMAB
     Indication: STEROID WITHDRAWAL SYNDROME
     Dosage: 1 DF, QOW
     Route: 051
     Dates: start: 20210220

REACTIONS (4)
  - Arthralgia [Not Recovered/Not Resolved]
  - Dry eye [Not Recovered/Not Resolved]
  - Nausea [Not Recovered/Not Resolved]
  - Diarrhoea [Not Recovered/Not Resolved]

NARRATIVE: CASE EVENT DATE: 20210220
